FAERS Safety Report 11202340 (Version 2)
Quarter: 2015Q3

REPORT INFORMATION
  Report Type: Spontaneous
  Country: PE (occurrence: PE)
  Receive Date: 20150619
  Receipt Date: 20150720
  Transmission Date: 20151125
  Serious: Yes (Other)
  Sender: FDA-Public Use
  Company Number: PE-PFIZER INC-2015198255

PATIENT
  Age: 76 Year
  Sex: Female

DRUGS (1)
  1. XALATAN [Suspect]
     Active Substance: LATANOPROST
     Indication: GLAUCOMA
     Dosage: 1 GTT, 1X/DAY ON EACH EYE
     Route: 047

REACTIONS (2)
  - Fall [Not Recovered/Not Resolved]
  - Abasia [Not Recovered/Not Resolved]
